FAERS Safety Report 7928462-3 (Version None)
Quarter: 2011Q4

REPORT INFORMATION
  Report Type: 
  Country: None (occurrence: None)
  Receive Date: 20111118
  Receipt Date: 20111108
  Transmission Date: 20120403
  Serious: Yes (Other)
  Sender: FDA-Public Use
  Company Number: PHEH2011US009400

PATIENT
  Sex: Female

DRUGS (7)
  1. METOPROLOL TARTRATE [Suspect]
     Dosage: 1/4 TABLET DAILY
  2. ASPIRIN [Concomitant]
  3. MULTAQ [Suspect]
     Indication: ATRIAL FIBRILLATION
     Dosage: 400 MG, BID
     Dates: start: 20101001
  4. WARFARIN SODIUM [Concomitant]
     Dosage: UNK
  5. FLECAINIDE ACETATE [Concomitant]
  6. PLAVIX [Concomitant]
     Dates: end: 20110101
  7. LIPITOR [Suspect]
     Indication: BLOOD CHOLESTEROL

REACTIONS (11)
  - MYALGIA [None]
  - MUSCULOSKELETAL PAIN [None]
  - FATIGUE [None]
  - ATRIAL FIBRILLATION [None]
  - ARTHRALGIA [None]
  - ABDOMINAL TENDERNESS [None]
  - WRONG TECHNIQUE IN DRUG USAGE PROCESS [None]
  - ABDOMINAL PAIN [None]
  - ASTHENIA [None]
  - DIZZINESS [None]
  - SYNCOPE [None]
